FAERS Safety Report 26114843 (Version 2)
Quarter: 2025Q4

REPORT INFORMATION
  Report Type: Spontaneous
  Country: EU (occurrence: EU)
  Receive Date: 20251203
  Receipt Date: 20251209
  Transmission Date: 20260118
  Serious: Yes (Hospitalization)
  Sender: ROCHE
  Company Number: EU-ROCHE-10000446260

PATIENT
  Age: 27 Year
  Sex: Female
  Weight: 78 kg

DRUGS (7)
  1. OCREVUS [Suspect]
     Active Substance: OCRELIZUMAB
     Indication: Multiple sclerosis
     Dosage: EACH 300 MG OCREVUS
     Route: 042
     Dates: start: 20220310, end: 20230911
  2. OCREVUS [Suspect]
     Active Substance: OCRELIZUMAB
     Dosage: EACH 300 MG OCREVUS
     Route: 042
     Dates: start: 20220310, end: 20230911
  3. OCREVUS [Suspect]
     Active Substance: OCRELIZUMAB
     Route: 042
     Dates: start: 20220310, end: 20230911
  4. OCREVUS [Suspect]
     Active Substance: OCRELIZUMAB
     Dosage: NATCH NO UNSURE WHETHER IT WAS H0069H05 OR H0068H05
     Route: 042
     Dates: start: 20220310, end: 20230911
  5. OCREVUS [Suspect]
     Active Substance: OCRELIZUMAB
     Route: 042
     Dates: start: 20220310, end: 20230911
  6. VITAMIN B12 [Concomitant]
     Active Substance: CYANOCOBALAMIN
     Route: 048
  7. VITAMIN B12 [Concomitant]
     Active Substance: CYANOCOBALAMIN
     Route: 048

REACTIONS (2)
  - Crohn^s disease [Recovered/Resolved]
  - Colitis ulcerative [Recovered/Resolved]

NARRATIVE: CASE EVENT DATE: 20231101
